FAERS Safety Report 8602068-5 (Version None)
Quarter: 2012Q3

REPORT INFORMATION
  Report Type: 
  Country: None (occurrence: None)
  Receive Date: 20120817
  Receipt Date: 20120808
  Transmission Date: 20120928
  Serious: Yes (Other)
  Sender: FDA-Public Use
  Company Number: JP-JNJFOC-20120705351

PATIENT
  Age: 70 Year
  Sex: Male

DRUGS (1)
  1. DORIPENEM MONOHYDRATE [Suspect]
     Indication: CHOLECYSTITIS
     Dosage: 1.5 G/D DR
     Route: 041
     Dates: start: 20120623, end: 20120705

REACTIONS (1)
  - PLATELET COUNT INCREASED [None]
